FAERS Safety Report 5637694-9 (Version None)
Quarter: 2008Q1

REPORT INFORMATION
  Report Type: 
  Country: None (occurrence: None)
  Receive Date: 20080219
  Receipt Date: 20080204
  Transmission Date: 20080703
  Serious: Yes (Death)
  Sender: FDA-Public Use
  Company Number: 2008-01226

PATIENT
  Age: 49 Year
  Sex: Male

DRUGS (9)
  1. FIORINAL [Suspect]
  2. GABAPENTIN [Suspect]
  3. AMLODIPINE BESYLATE [Suspect]
  4. DIAZEPAM [Suspect]
  5. LISINOPRIL [Suspect]
  6. MICROZIDE [Suspect]
  7. VENLAFAXINE HCL [Suspect]
  8. IMIPRAMINE [Suspect]
  9. BETA BLOCKING AGENTS [Suspect]

REACTIONS (1)
  - DEATH [None]
